FAERS Safety Report 11642314 (Version 1)
Quarter: 2015Q4

REPORT INFORMATION
  Report Type: Spontaneous
  Country: IE (occurrence: IE)
  Receive Date: 20151019
  Receipt Date: 20151019
  Transmission Date: 20160304
  Serious: Yes (Other)
  Sender: FDA-Public Use
  Company Number: IE-IGSA-IG003543

PATIENT
  Age: 57 Year
  Sex: Male

DRUGS (1)
  1. FLEBOGAMMA DIF [Suspect]
     Active Substance: HUMAN IMMUNOGLOBULIN G
     Indication: INCLUSION BODY MYOSITIS
     Route: 042
     Dates: start: 20150921

REACTIONS (8)
  - Cold sweat [Recovered/Resolved]
  - Pallor [Recovered/Resolved]
  - Selective IgA immunodeficiency [Recovered/Resolved]
  - Dizziness [Recovered/Resolved]
  - Hypotension [Recovered/Resolved]
  - Tremor [Recovered/Resolved]
  - Bradycardia [Recovered/Resolved]
  - Infusion related reaction [None]

NARRATIVE: CASE EVENT DATE: 20150921
